FAERS Safety Report 22357036 (Version 2)
Quarter: 2023Q2

REPORT INFORMATION
  Report Type: Spontaneous
  Country: JP (occurrence: JP)
  Receive Date: 20230523
  Receipt Date: 20230609
  Transmission Date: 20230722
  Serious: Yes (Hospitalization, Other)
  Sender: FDA-Public Use
  Company Number: JP-BAXTER-2022BAX030800

PATIENT
  Age: 65 Year
  Sex: Female

DRUGS (1)
  1. DOXORUBICIN [Suspect]
     Active Substance: DOXORUBICIN
     Indication: Breast cancer
     Route: 065

REACTIONS (11)
  - Low cardiac output syndrome [Unknown]
  - Ejection fraction decreased [Unknown]
  - Dyspnoea [Unknown]
  - Sinus tachycardia [Unknown]
  - Condition aggravated [Unknown]
  - Cardiac dysfunction [Unknown]
  - Hypotension [Unknown]
  - Arterial flow velocity decreased [Unknown]
  - Cardiac output decreased [Unknown]
  - Cardiomyopathy [Unknown]
  - Cardiac failure congestive [Unknown]
